FAERS Safety Report 21887505 (Version 3)
Quarter: 2023Q1

REPORT INFORMATION
  Report Type: Spontaneous
  Country: US (occurrence: US)
  Receive Date: 20230120
  Receipt Date: 20230323
  Transmission Date: 20230418
  Serious: No
  Sender: FDA-Public Use
  Company Number: US-AMGEN-USASP2023004182

PATIENT
  Age: 26 Year
  Sex: Female

DRUGS (3)
  1. PROLIA [Suspect]
     Active Substance: DENOSUMAB
     Indication: Osteoporosis postmenopausal
     Dosage: UNK, Q6MO
     Route: 058
     Dates: start: 2022
  2. ALGAE CALCIUM [Concomitant]
     Indication: Osteoporosis
  3. STRONTIUM [Concomitant]
     Active Substance: STRONTIUM
     Indication: Osteoporosis

REACTIONS (3)
  - Pain in jaw [Not Recovered/Not Resolved]
  - Rubber sensitivity [Unknown]
  - Pain in extremity [Not Recovered/Not Resolved]

NARRATIVE: CASE EVENT DATE: 20220101
